FAERS Safety Report 25340362 (Version 3)
Quarter: 2025Q2

REPORT INFORMATION
  Report Type: Spontaneous
  Country: US (occurrence: US)
  Receive Date: 20250521
  Receipt Date: 20250628
  Transmission Date: 20250716
  Serious: Yes (Other)
  Sender: AZURITY PHARMACEUTICALS
  Company Number: US-AZURITY PHARMACEUTICALS, INC.-AZR202504-001135

PATIENT
  Sex: Male

DRUGS (1)
  1. DANZITEN [Suspect]
     Active Substance: NILOTINIB
     Indication: Philadelphia positive chronic myeloid leukaemia
     Route: 065
     Dates: start: 20250329

REACTIONS (4)
  - Cholelithiasis [Recovered/Resolved]
  - Cyst [Recovered/Resolved]
  - Pancreatitis [Unknown]
  - Therapy cessation [Unknown]
